FAERS Safety Report 8582254-3 (Version None)
Quarter: 2012Q3

REPORT INFORMATION
  Report Type: 
  Country: None (occurrence: None)
  Receive Date: 20120727
  Receipt Date: 20120719
  Transmission Date: 20120928
  Serious: Yes (Death, Hospitalization, Other)
  Sender: FDA-Public Use
  Company Number: AUR-APL-2012-03120

PATIENT
  Age: 77 Year
  Sex: Male

DRUGS (1)
  1. AMOXICILLIN AND CLAVULANATE POTASSIUM [Suspect]
     Indication: CHOLECYSTITIS
     Dosage: ORAL
     Route: 048
     Dates: start: 20120615, end: 20120622

REACTIONS (2)
  - MYOCARDIAL ISCHAEMIA [None]
  - JAUNDICE [None]
